FAERS Safety Report 16465870 (Version 1)
Quarter: 2019Q2

REPORT INFORMATION
  Report Type: Spontaneous
  Country: US (occurrence: US)
  Receive Date: 20190621
  Receipt Date: 20190621
  Transmission Date: 20190711
  Serious: No
  Sender: FDA-Public Use
  Company Number: US-ACTELION-A-NJ2019-192090

PATIENT
  Age: 79 Year
  Sex: Male
  Weight: 102.49 kg

DRUGS (3)
  1. OPSUMIT [Concomitant]
     Active Substance: MACITENTAN
     Indication: PULMONARY ARTERIAL HYPERTENSION
  2. UPTRAVI [Suspect]
     Active Substance: SELEXIPAG
     Dosage: UNK
     Route: 048
  3. UPTRAVI [Suspect]
     Active Substance: SELEXIPAG
     Indication: PULMONARY ARTERIAL HYPERTENSION
     Dosage: 400 MCG, BID
     Route: 048
     Dates: start: 20190607

REACTIONS (8)
  - Musculoskeletal pain [Unknown]
  - Arthralgia [Unknown]
  - Urinary retention [Unknown]
  - Myalgia [Unknown]
  - Headache [Unknown]
  - Chills [Unknown]
  - Pain in extremity [Unknown]
  - Nasal congestion [Unknown]

NARRATIVE: CASE EVENT DATE: 201906
